FAERS Safety Report 5758671-3 (Version None)
Quarter: 2008Q2

REPORT INFORMATION
  Report Type: 
  Country: None (occurrence: None)
  Receive Date: 20080507
  Receipt Date: 20070625
  Transmission Date: 20081010
  Serious: Yes (Hospitalization)
  Sender: FDA-Public Use
  Company Number: 235176K07USA

PATIENT
  Age: 51 Year
  Sex: Female
  Weight: 45.3597 kg

DRUGS (4)
  1. REBIF [Suspect]
     Indication: MULTIPLE SCLEROSIS
     Dosage: 44 MCG, 3 IN 1 WEEKS, SUBCUTANEOUS
     Route: 058
     Dates: start: 20070409, end: 20070601
  2. PAXIL [Concomitant]
  3. SYMMETREL [Concomitant]
  4. PREMPRO (PROVELLA-14) [Concomitant]

REACTIONS (3)
  - INSOMNIA [None]
  - MIGRAINE [None]
  - MULTIPLE SCLEROSIS RELAPSE [None]
